FAERS Safety Report 9032162 (Version 2)
Quarter: 2013Q1

REPORT INFORMATION
  Report Type: Report from Study
  Country: IL (occurrence: IL)
  Receive Date: 20130122
  Receipt Date: 20130129
  Transmission Date: 20140127
  Serious: Yes (Other)
  Sender: FDA-Public Use
  Company Number: IL-009507513-1301ISR001194

PATIENT
  Age: 63 Year
  Sex: Male
  Weight: 77 kg

DRUGS (18)
  1. BLINDED EZETIMIBE (+) SIMVASTATIN [Suspect]
     Indication: ACUTE CORONARY SYNDROME
     Dosage: UNK
     Route: 048
     Dates: start: 20071121
  2. BLINDED PLACEBO [Suspect]
     Indication: ACUTE CORONARY SYNDROME
     Dosage: UNK
     Route: 048
     Dates: start: 20071121
  3. BLINDED POST TRIAL THERAPY [Suspect]
     Indication: ACUTE CORONARY SYNDROME
     Dosage: UNK
     Route: 048
     Dates: start: 20071121
  4. BLINDED PRE TRIAL THERAPY [Suspect]
     Indication: ACUTE CORONARY SYNDROME
     Dosage: UNK
     Route: 048
     Dates: start: 20071121
  5. BLINDED SIMVASTATIN [Suspect]
     Indication: ACUTE CORONARY SYNDROME
     Dosage: UNK
     Route: 048
     Dates: start: 20071121
  6. BLINDED THERAPY [Suspect]
     Indication: ACUTE CORONARY SYNDROME
     Dosage: UNK
     Route: 048
     Dates: start: 20071121
  7. OMEPRADEX [Concomitant]
     Dosage: 20 MG DAILY
     Route: 048
     Dates: start: 20080214
  8. INSPRA [Concomitant]
     Dosage: 25 MG DAILY
     Route: 048
     Dates: start: 20120319
  9. DIGOXIN ZORI [Concomitant]
     Dosage: 0.125 MG, 0.25 MG ONCE DAY 1/2 TABLET, ONE DAY 1 TABLET
     Route: 048
     Dates: start: 20081103
  10. ALLORIL [Concomitant]
     Dosage: 100 MG DAILY
     Route: 048
     Dates: start: 20120319
  11. FUSID (FUROSEMIDE) [Concomitant]
     Dosage: 80 MG DAILY
     Route: 048
     Dates: start: 20081003
  12. DIOVAN [Concomitant]
     Dosage: 120 MG DAILY
     Route: 048
     Dates: start: 20080414
  13. ASPIRIN [Concomitant]
     Dosage: 150 MG DAILY
     Route: 048
     Dates: start: 20080220
  14. PLAVIX [Concomitant]
     Dosage: 75 MG DAILY
     Route: 048
     Dates: start: 20071117
  15. CARDILOC [Concomitant]
     Dosage: 3.75 MG DAILY
     Route: 048
     Dates: start: 20100729
  16. SERETIDE DISKUS [Concomitant]
     Dosage: 50 + 500 MCG DAILY
     Route: 055
     Dates: start: 20080818
  17. AEROVENT [Concomitant]
     Dosage: 0.25 MG/ML DAILY
     Route: 055
     Dates: start: 20110803
  18. SPIRIVA [Concomitant]
     Dosage: 18 MICROGRAM, BID
     Route: 055
     Dates: start: 20090131

REACTIONS (2)
  - Hypermetabolism [Unknown]
  - Emphysema [Unknown]
